FAERS Safety Report 24830415 (Version 2)
Quarter: 2025Q3

REPORT INFORMATION
  Report Type: Spontaneous
  Country: US (occurrence: US)
  Receive Date: 20250110
  Receipt Date: 20250810
  Transmission Date: 20251020
  Serious: No
  Sender: ALEXION PHARMACEUTICALS
  Company Number: US-AstraZeneca-CH-00780955A

PATIENT
  Sex: Female

DRUGS (1)
  1. LYNPARZA [Suspect]
     Active Substance: OLAPARIB
     Route: 065

REACTIONS (3)
  - Productive cough [Unknown]
  - Cough [Unknown]
  - Pulmonary calcification [Unknown]

NARRATIVE: CASE EVENT DATE: 20240101
